FAERS Safety Report 4796561-3 (Version None)
Quarter: 2005Q4

REPORT INFORMATION
  Report Type: 
  Country: None (occurrence: None)
  Receive Date: 20051011
  Receipt Date: 20041209
  Transmission Date: 20060501
  Serious: Yes (Hospitalization)
  Sender: FDA-Public Use
  Company Number: US-JNJFOC-20041105988

PATIENT
  Age: 59 Year
  Sex: Female
  Weight: 68.0396 kg

DRUGS (5)
  1. ULTRACET [Suspect]
     Indication: FIBROMYALGIA
     Dosage: 2 IN 1 DAY, ORAL
     Route: 048
     Dates: start: 20020501, end: 20020725
  2. ULTRACET [Suspect]
     Indication: PAIN
     Dosage: 2 IN 1 DAY, ORAL
     Route: 048
     Dates: start: 20020501, end: 20020725
  3. PAXIL [Concomitant]
  4. LIBRIUM [Concomitant]
  5. PARAFON FORTE (CHLORZEXAZONE) TABLETS [Concomitant]

REACTIONS (1)
  - CONVULSION [None]
